FAERS Safety Report 9891614 (Version 3)
Quarter: 2015Q1

REPORT INFORMATION
  Report Type: Report from Study
  Country: US (occurrence: US)
  Receive Date: 20140212
  Receipt Date: 20150112
  Transmission Date: 20150721
  Serious: Yes (Other)
  Sender: FDA-Public Use
  Company Number: US-PFIZER INC-2014033504

PATIENT
  Age: 65 Year
  Sex: Male

DRUGS (8)
  1. CALCIUM LEVOFOLINATE [Suspect]
     Active Substance: LEVOLEUCOVORIN CALCIUM
     Indication: COLORECTAL CANCER METASTATIC
     Dosage: LAST DOSE PRIOR TO SAE: 04SEP2013; 100 MG/M2, 1X/DAY
     Route: 042
     Dates: start: 20130724, end: 20130918
  2. FLUOROURACIL. [Suspect]
     Active Substance: FLUOROURACIL
     Indication: COLORECTAL CANCER METASTATIC
     Dosage: INFUSION, LAST DOSE PRIOR TO SAE: 04SEP2013; 3200 MG/M2 1X/DAY
     Route: 042
     Dates: start: 20130612, end: 20130918
  3. BEVACIZUMAB [Suspect]
     Active Substance: BEVACIZUMAB
     Indication: COLORECTAL CANCER METASTATIC
     Dosage: LAST DOSE PRIOR TO SAE: 04SEP2013; 5 MG/KG, 1X/DAY
     Route: 042
     Dates: start: 20130612, end: 20130918
  4. CARVEDILOL. [Concomitant]
     Active Substance: CARVEDILOL
     Indication: HYPERTENSION
     Dosage: 12.5 MG, UNK
     Dates: start: 201105
  5. OXALIPLATIN. [Suspect]
     Active Substance: OXALIPLATIN
     Indication: COLORECTAL CANCER METASTATIC
     Dosage: LAST DOSE PRIOR TO SAE: 04SEP2013; 85 MG/M2, 1X/DAY
     Route: 042
     Dates: start: 20130612, end: 20130918
  6. LEUCOVORIN [Suspect]
     Active Substance: LEUCOVORIN
     Indication: COLORECTAL CANCER METASTATIC
     Dosage: 404 MG, 1 IN 2 WK
     Route: 042
     Dates: start: 20130612, end: 20130918
  7. LISINOPRIL. [Concomitant]
     Active Substance: LISINOPRIL
     Indication: HYPERTENSION
     Dosage: 20 MG, UNK
     Dates: start: 201105
  8. IRINOTECAN HCL [Suspect]
     Active Substance: IRINOTECAN HYDROCHLORIDE
     Indication: COLORECTAL CANCER METASTATIC
     Dosage: LAST DOSE PRIOR TO SAE: 04SEP2013; 165 MG/M2, 1X/DAY
     Route: 042
     Dates: start: 20130612, end: 20130918

REACTIONS (1)
  - Hypertension [Recovered/Resolved]

NARRATIVE: CASE EVENT DATE: 20130918
